FAERS Safety Report 6765597-5 (Version None)
Quarter: 2010Q2

REPORT INFORMATION
  Report Type: 
  Country: None (occurrence: None)
  Receive Date: 20100611
  Receipt Date: 20100601
  Transmission Date: 20101027
  Serious: Yes (Other)
  Sender: FDA-Public Use
  Company Number: IT-JNJFOC-20100600720

PATIENT
  Age: 47 Year
  Sex: Male
  Weight: 115 kg

DRUGS (3)
  1. REMICADE [Suspect]
     Indication: PROCTOCOLITIS
     Route: 042
  2. AZATHIOPRINE [Concomitant]
     Indication: PROCTOCOLITIS
  3. MESALAZINE [Concomitant]
     Indication: PROCTOCOLITIS

REACTIONS (1)
  - LUNG NEOPLASM [None]
